FAERS Safety Report 25706280 (Version 2)
Quarter: 2025Q3

REPORT INFORMATION
  Report Type: Report from Study
  Country: CA (occurrence: CA)
  Receive Date: 20250820
  Receipt Date: 20250924
  Transmission Date: 20251020
  Serious: Yes (Other)
  Sender: TAKEDA
  Company Number: CA-TAKEDA-2025TUS073606

PATIENT
  Sex: Male

DRUGS (6)
  1. VEDOLIZUMAB [Suspect]
     Active Substance: VEDOLIZUMAB
     Indication: Colitis ulcerative
  2. VEDOLIZUMAB [Suspect]
     Active Substance: VEDOLIZUMAB
     Dosage: 300 MILLIGRAM, Q6WEEKS
     Dates: start: 20250916
  3. BUDESONIDE [Concomitant]
     Active Substance: BUDESONIDE
     Dosage: 9 MILLIGRAM, QD
     Dates: start: 20241111
  4. IRON [Concomitant]
     Active Substance: IRON
     Indication: Mineral supplementation
  5. TESTOSTERONE [Concomitant]
     Active Substance: TESTOSTERONE
  6. DULOXETINE [Concomitant]
     Active Substance: DULOXETINE

REACTIONS (7)
  - Colitis ulcerative [Unknown]
  - Haematochezia [Unknown]
  - Diarrhoea [Unknown]
  - Asthenia [Unknown]
  - Vomiting [Unknown]
  - Pyrexia [Unknown]
  - Off label use [Unknown]
